FAERS Safety Report 7369291-1 (Version None)
Quarter: 2011Q1

REPORT INFORMATION
  Report Type: 
  Country: None (occurrence: None)
  Receive Date: 20110323
  Receipt Date: 20110315
  Transmission Date: 20110831
  Serious: Yes (Hospitalization, Congenital Anomaly)
  Sender: FDA-Public Use
  Company Number: A0919467A

PATIENT
  Sex: Male
  Weight: 3.1 kg

DRUGS (4)
  1. PAXIL [Suspect]
     Indication: ANXIETY
     Dosage: 40MG PER DAY
     Route: 064
  2. AMBIEN [Concomitant]
  3. ABILIFY [Concomitant]
  4. ZOLPIDEM [Concomitant]

REACTIONS (6)
  - VENTRICULAR SEPTAL DEFECT [None]
  - ATRIAL SEPTAL DEFECT [None]
  - COARCTATION OF THE AORTA [None]
  - PATENT DUCTUS ARTERIOSUS [None]
  - HYPOPLASTIC LEFT HEART SYNDROME [None]
  - DRUG EXPOSURE DURING PREGNANCY [None]
